FAERS Safety Report 7272935-6 (Version None)
Quarter: 2011Q1

REPORT INFORMATION
  Report Type: 
  Country: None (occurrence: None)
  Receive Date: 20110203
  Receipt Date: 20110128
  Transmission Date: 20110831
  Serious: Yes (Hospitalization)
  Sender: FDA-Public Use
  Company Number: A0778077A

PATIENT
  Age: 62 Year
  Sex: Male
  Weight: 88.6 kg

DRUGS (4)
  1. AVANDIA [Suspect]
     Dosage: 8MG TWICE PER DAY
     Route: 048
     Dates: start: 20030501, end: 20080320
  2. GLUCOPHAGE [Concomitant]
     Dates: start: 19960101, end: 20080101
  3. METFORMIN [Concomitant]
     Dates: start: 19960101, end: 20080101
  4. GLARGINE [Concomitant]
     Dates: start: 20070101

REACTIONS (11)
  - PULMONARY OEDEMA [None]
  - DIABETES WITH HYPEROSMOLARITY [None]
  - CARDIAC FAILURE CONGESTIVE [None]
  - RESPIRATORY DISORDER [None]
  - PULMONARY FIBROSIS [None]
  - MYOCARDIAL ISCHAEMIA [None]
  - ANAEMIA [None]
  - DEPRESSION [None]
  - MYOCARDIAL INFARCTION [None]
  - ACTIVITIES OF DAILY LIVING IMPAIRED [None]
  - GASTROINTESTINAL HAEMORRHAGE [None]
